FAERS Safety Report 11394709 (Version 3)
Quarter: 2015Q4

REPORT INFORMATION
  Report Type: Report from Study
  Country: AU (occurrence: AU)
  Receive Date: 20150819
  Receipt Date: 20151105
  Transmission Date: 20160304
  Serious: Yes (Hospitalization)
  Sender: FDA-Public Use
  Company Number: AU-ABBVIE-15P-008-1434017-00

PATIENT
  Age: 75 Year
  Sex: Male
  Weight: 73 kg

DRUGS (2)
  1. DUODOPA [Suspect]
     Active Substance: CARBIDOPA\LEVODOPA
     Indication: PARKINSON^S DISEASE
     Dosage: 16 HOURS A DAY
     Route: 065
     Dates: start: 20150714
  2. DUODOPA [Suspect]
     Active Substance: CARBIDOPA\LEVODOPA
     Dosage: 12ML MANE AND 4.3ML/HR
     Route: 065
     Dates: start: 20150715

REACTIONS (4)
  - Stoma site pain [Not Recovered/Not Resolved]
  - Stress [Unknown]
  - Stoma site infection [Not Recovered/Not Resolved]
  - Stoma site erythema [Unknown]

NARRATIVE: CASE EVENT DATE: 20150724
